FAERS Safety Report 8615935 (Version 2)
Quarter: 2012Q4

REPORT INFORMATION
  Report Type: 
  Country: US (occurrence: US)
  Receive Date: 20120614
  Receipt Date: 20120927
  Transmission Date: 20130627
  Serious: No
  Sender: FDA-Public Use
  Company Number: US-AMGEN-USASP2012030411

PATIENT
  Age: 52 Year
  Sex: Female
  Weight: 63.4 kg

DRUGS (3)
  1. PROLIA [Suspect]
     Indication: OSTEOPOROSIS POSTMENOPAUSAL
     Dosage: 60 mg, q6mo
     Route: 058
     Dates: start: 20120417
  2. CALTRATE WITH VITAMIN D [Concomitant]
     Dosage: 1500 mg, qd
     Dates: start: 20120106
  3. VIACTIV [Concomitant]
     Dosage: 500 mg, qd
     Route: 048
     Dates: start: 20120106

REACTIONS (10)
  - Paraesthesia [Not Recovered/Not Resolved]
  - Eye pruritus [Not Recovered/Not Resolved]
  - Paraesthesia oral [Not Recovered/Not Resolved]
  - Hypoaesthesia [Unknown]
  - Thirst [Unknown]
  - Hot flush [Unknown]
  - Musculoskeletal stiffness [Unknown]
  - Arthralgia [Unknown]
  - Hypocalcaemia [Unknown]
  - Pain in extremity [Not Recovered/Not Resolved]
